FAERS Safety Report 16845308 (Version 1)
Quarter: 2019Q3

REPORT INFORMATION
  Report Type: Spontaneous
  Country: US (occurrence: US)
  Receive Date: 20190924
  Receipt Date: 20190924
  Transmission Date: 20191005
  Serious: No
  Sender: FDA-Public Use
  Company Number: US-TEVA-2019-US-1111065

PATIENT
  Sex: Female

DRUGS (1)
  1. COPAXONE [Suspect]
     Active Substance: GLATIRAMER ACETATE
     Dosage: 3-INJECTIONS-A-WEEK, FORM STRENGTH: UNKNOWN.
     Route: 065

REACTIONS (2)
  - Burning sensation [Unknown]
  - Anxiety [Unknown]
